FAERS Safety Report 14338061 (Version 1)
Quarter: 2017Q4

REPORT INFORMATION
  Report Type: Spontaneous
  Country: GB (occurrence: GB)
  Receive Date: 20171229
  Receipt Date: 20171229
  Transmission Date: 20180321
  Serious: Yes (Disabling, Other)
  Sender: FDA-Public Use
  Company Number: GB-MYLANLABS-2017M1082875

PATIENT
  Sex: Female

DRUGS (4)
  1. LOPERAMIDE HYDROCHLORIDE CAPSULES 2 MG [Suspect]
     Active Substance: LOPERAMIDE HYDROCHLORIDE
     Indication: PRODUCT USED FOR UNKNOWN INDICATION
     Dosage: UNK
     Route: 048
  2. LOPERAMIDE HYDROCHLORIDE CAPSULES 2 MG [Suspect]
     Active Substance: LOPERAMIDE HYDROCHLORIDE
     Dosage: 10 CAPSULES A DAY, UNK
     Route: 048
  3. LOPERAMIDE HYDROCHLORIDE CAPSULES 2 MG [Suspect]
     Active Substance: LOPERAMIDE HYDROCHLORIDE
     Dosage: UNK (DOUBLED THE DOSE)
     Route: 048
  4. LOPERAMIDE HYDROCHLORIDE CAPSULES 2 MG [Suspect]
     Active Substance: LOPERAMIDE HYDROCHLORIDE
     Dosage: 2 CAPSULES A DAY, UNK
     Route: 048

REACTIONS (4)
  - Gait inability [Unknown]
  - Overdose [Unknown]
  - Dysstasia [Unknown]
  - Dysgraphia [Unknown]
